FAERS Safety Report 5851345-X (Version None)
Quarter: 2008Q3

REPORT INFORMATION
  Report Type: 
  Country: None (occurrence: None)
  Receive Date: 20080731
  Receipt Date: 20080501
  Transmission Date: 20090109
  Serious: No
  Sender: FDA-Public Use
  Company Number: 2006PV020288

PATIENT
  Age: 83 Year
  Sex: Female

DRUGS (5)
  1. EXENATIDE(EXENATIDE) PEN,DISPOSABLE [Suspect]
     Indication: TYPE 2 DIABETES MELLITUS
     Dosage: 5 UG, 2/D, SUBCUTANEOUS
     Route: 058
     Dates: start: 20060601
  2. EXENATIDE(EXENATIDE) PEN,DISPOSABLE [Suspect]
     Indication: TYPE 2 DIABETES MELLITUS
     Dosage: 5 UG, 2/D, SUBCUTANEOUS
     Route: 058
     Dates: start: 20060801
  3. EXENATIDE(EXENATIDE) PEN,DISPOSABLE [Suspect]
  4. METFORMIN HCL [Concomitant]
  5. DRUG USED IN DIABETES [Concomitant]

REACTIONS (6)
  - BLOOD GLUCOSE INCREASED [None]
  - DECREASED APPETITE [None]
  - DRUG EFFECT DECREASED [None]
  - DYSGEUSIA [None]
  - EARLY SATIETY [None]
  - WEIGHT DECREASED [None]
